FAERS Safety Report 7200637 (Version 3)
Quarter: 2013Q2

REPORT INFORMATION
  Report Type: Report from Study
  Country: US (occurrence: US)
  Receive Date: 20091204
  Receipt Date: 20130510
  Transmission Date: 20140414
  Serious: Yes (Other)
  Sender: FDA-Public Use
  Company Number: US-BRISTOL-MYERS SQUIBB COMPANY-14877955

PATIENT
  Age: 19 Month
  Sex: Female
  Weight: 10.5 kg

DRUGS (4)
  1. ATAZANAVIR [Suspect]
     Indication: HIV INFECTION
     Dosage: INTERRUPTED ON 27OCT09 RESUMED ON 09-NOV-2009
     Route: 048
     Dates: start: 20080729
  2. RITONAVIR [Suspect]
     Indication: HIV INFECTION
     Dosage: INTERRUPTED ON 27OCT09, RESUMED ON 09-NOV-2009
     Route: 048
     Dates: start: 20080729
  3. EPIVIR [Suspect]
     Dosage: 15MONTHS;40MG.
     Route: 048
     Dates: start: 20080729
  4. ZIDOVUDINE [Suspect]
     Dosage: 15MONTHS;120MG.
     Route: 048
     Dates: start: 20080729

REACTIONS (2)
  - Blood alkaline phosphatase increased [Recovered/Resolved]
  - Arthralgia [Recovered/Resolved]
